FAERS Safety Report 5726883-0 (Version None)
Quarter: 2008Q2

REPORT INFORMATION
  Report Type: 
  Country: None (occurrence: None)
  Receive Date: 20080502
  Receipt Date: 20080424
  Transmission Date: 20081010
  Serious: Yes (Other)
  Sender: FDA-Public Use
  Company Number: US-PFIZER INC-2008036256

PATIENT
  Sex: Female
  Weight: 120.45 kg

DRUGS (8)
  1. CELEBREX [Suspect]
     Indication: BACK INJURY
  2. ALL OTHER THERAPEUTIC PRODUCTS [Concomitant]
  3. ZOLOFT [Concomitant]
  4. FLEXERIL [Concomitant]
  5. CONTRACEPTIVE, UNSPECIFIED [Concomitant]
  6. RITALIN [Concomitant]
  7. PAMELOR [Concomitant]
  8. KLONOPIN [Concomitant]

REACTIONS (1)
  - SKIN ULCER [None]
